FAERS Safety Report 9553011 (Version 4)
Quarter: 2013Q4

REPORT INFORMATION
  Report Type: Spontaneous
  Country: US (occurrence: None)
  Receive Date: 20130911
  Receipt Date: 20131211
  Transmission Date: 20140711
  Serious: Yes (Hospitalization, Other)
  Sender: FDA-Public Use
  Company Number: 003-144

PATIENT
  Age: 23 Year
  Sex: Female

DRUGS (1)
  1. CROFAB (BTG INTERNATIONAL, INC) [Suspect]
     Indication: SNAKE BITE
     Dates: start: 20130829

REACTIONS (18)
  - Dyspnoea [None]
  - Flushing [None]
  - Blood pressure systolic increased [None]
  - Heart rate increased [None]
  - Oedema peripheral [None]
  - Ecchymosis [None]
  - Platelet count decreased [None]
  - Pain [None]
  - Blood creatinine decreased [None]
  - Skin warm [None]
  - Cellulitis [None]
  - Supraventricular tachycardia [None]
  - Haemoglobin increased [None]
  - Prothrombin time prolonged [None]
  - Activated partial thromboplastin time prolonged [None]
  - Gravitational oedema [None]
  - Supraventricular tachycardia [None]
  - Hypertension [None]
